FAERS Safety Report 6334952-X (Version None)
Quarter: 2009Q3

REPORT INFORMATION
  Report Type: 
  Country: None (occurrence: None)
  Receive Date: 20090828
  Receipt Date: 20090828
  Transmission Date: 20100115
  Serious: Yes (Disabling)
  Sender: FDA-Public Use
  Company Number: None

PATIENT
  Age: 50 Year
  Sex: Female
  Weight: 81.6475 kg

DRUGS (1)
  1. ZICAM, NASAL GEL MATRIXX INITIATIVES, INC [Suspect]
     Indication: NASOPHARYNGITIS
     Dates: start: 20090505, end: 20090510

REACTIONS (1)
  - ANOSMIA [None]
